FAERS Safety Report 5770505-X (Version None)
Quarter: 2008Q2

REPORT INFORMATION
  Report Type: 
  Country: None (occurrence: None)
  Receive Date: 20080613
  Receipt Date: 20080505
  Transmission Date: 20081010
  Serious: No
  Sender: FDA-Public Use
  Company Number: US-ABBOTT-08P-163-0450468-00

PATIENT
  Sex: Female
  Weight: 78.996 kg

DRUGS (9)
  1. HUMIRA [Suspect]
     Indication: CROHN'S DISEASE
     Route: 058
     Dates: start: 20080301, end: 20080301
  2. HUMIRA [Suspect]
     Route: 058
  3. HUMIRA [Suspect]
     Route: 058
  4. MESALAMINE [Concomitant]
     Indication: CROHN'S DISEASE
     Dosage: TWO TABLETS EVERY EIGHT HOURS
     Route: 048
     Dates: start: 20060101
  5. ESTRODERM PATCH [Concomitant]
     Indication: MENOPAUSAL SYMPTOMS
     Dosage: CHANGE TWO TIMES WEEKLY
     Route: 061
     Dates: start: 20010101
  6. HYOSCYAMINE SULFATE [Concomitant]
     Indication: DYSPEPSIA
     Dosage: 6 TO 12 ML DAILY, 1-2 ML Q 4 HRS
     Route: 048
     Dates: start: 20071001
  7. ALENDRONATE SODIUM [Concomitant]
     Indication: OSTEOPOROSIS
     Route: 048
     Dates: start: 20071001
  8. ESOMEPRAZOLE MAGNESIUM [Concomitant]
     Indication: GASTROOESOPHAGEAL REFLUX DISEASE
     Route: 048
     Dates: start: 20060101
  9. MIDRID [Concomitant]
     Indication: MIGRAINE
     Route: 048
     Dates: start: 20020101

REACTIONS (1)
  - ACCIDENTAL EXPOSURE [None]
